FAERS Safety Report 4373890-9 (Version None)
Quarter: 2004Q1

REPORT INFORMATION
  Report Type: 
  Country: None (occurrence: None)
  Receive Date: 20040305
  Receipt Date: 20040122
  Transmission Date: 20041129
  Serious: Yes (Other)
  Sender: FDA-Public Use
  Company Number: 2004UW01143

PATIENT
  Age: 73 Year
  Sex: Male
  Weight: 95.2554 kg

DRUGS (6)
  1. CRESTOR [Suspect]
     Indication: BLOOD CHOLESTEROL INCREASED
     Dosage: 10 MG QD PO
     Route: 048
     Dates: start: 20040112
  2. GLUCOPHAGE [Concomitant]
  3. INSULIN [Concomitant]
  4. DICYCLOMINE [Concomitant]
  5. EFFEXOR [Concomitant]
  6. ULTRACET [Concomitant]

REACTIONS (2)
  - HEADACHE [None]
  - RESTLESSNESS [None]
